FAERS Safety Report 24559785 (Version 1)
Quarter: 2024Q4

REPORT INFORMATION
  Report Type: Spontaneous
  Country: FR (occurrence: FR)
  Receive Date: 20241029
  Receipt Date: 20241029
  Transmission Date: 20250114
  Serious: Yes (Hospitalization)
  Sender: DR REDDYS
  Company Number: None

PATIENT
  Age: 49 Year
  Sex: Female
  Weight: 83.5 kg

DRUGS (14)
  1. CYCLOPHOSPHAMIDE [Suspect]
     Active Substance: CYCLOPHOSPHAMIDE
     Indication: Graft versus host disease
     Dosage: SUSPECT STARTED ON 03-SEP-2024
     Route: 042
     Dates: start: 202409, end: 20240904
  2. BUSULFAN [Suspect]
     Active Substance: BUSULFAN
     Indication: Bone marrow conditioning regimen
     Dosage: 3.2 MG/KG?BUSULFAN FRESENIUS KABI 6 MG/ML, CONCENTRATE FOR SOLUTION FOR INFUSION
     Route: 042
     Dates: start: 20240826, end: 20240827
  3. THIOTEPA [Suspect]
     Active Substance: THIOTEPA
     Indication: Bone marrow conditioning regimen
     Route: 042
     Dates: start: 20240824, end: 20240824
  4. CELLCEPT [Concomitant]
     Active Substance: MYCOPHENOLATE MOFETIL
  5. CYCLOSPORINE [Concomitant]
     Active Substance: CYCLOSPORINE
  6. LETERMOVIR [Concomitant]
     Active Substance: LETERMOVIR
  7. ACYCLOVIR [Concomitant]
     Active Substance: ACYCLOVIR
  8. SUFENTANIL [Concomitant]
     Active Substance: SUFENTANIL
  9. NOREPINEPHRINE [Concomitant]
     Active Substance: NOREPINEPHRINE\NOREPINEPHRINE BITARTRATE
  10. CASPOFUNGIN [Concomitant]
     Active Substance: CASPOFUNGIN
  11. FOSCARNET SODIUM [Concomitant]
     Active Substance: FOSCARNET SODIUM
  12. TOCILIZUMAB [Concomitant]
     Active Substance: TOCILIZUMAB
  13. POSACONAZOLE [Concomitant]
     Active Substance: POSACONAZOLE
  14. PANTOPRAZOLE [Concomitant]
     Active Substance: PANTOPRAZOLE

REACTIONS (1)
  - Venoocclusive liver disease [Not Recovered/Not Resolved]

NARRATIVE: CASE EVENT DATE: 20240901
